FAERS Safety Report 8608427-9 (Version None)
Quarter: 2012Q3

REPORT INFORMATION
  Report Type: 
  Country: None (occurrence: None)
  Receive Date: 20120821
  Receipt Date: 20120809
  Transmission Date: 20120928
  Serious: Yes (Life-Threatening, Hospitalization, Other)
  Sender: FDA-Public Use
  Company Number: US-ACTELION-A-US2012-63627

PATIENT
  Age: 52 Year
  Sex: Female

DRUGS (4)
  1. TRACLEER [Suspect]
     Indication: PULMONARY ARTERIAL HYPERTENSION
     Dosage: UNK MG, UNK
     Route: 048
  2. PRADAXA [Concomitant]
  3. ADCIRCA [Concomitant]
  4. ASPIRIN [Concomitant]

REACTIONS (13)
  - RESPIRATORY DISORDER [None]
  - FATIGUE [None]
  - LUNG DISORDER [None]
  - BACK PAIN [None]
  - HEART RATE IRREGULAR [None]
  - PULMONARY HYPERTENSION [None]
  - PLEURAL EFFUSION [None]
  - CARDIAC FAILURE CONGESTIVE [None]
  - CHEST PAIN [None]
  - DYSPNOEA [None]
  - JOINT SWELLING [None]
  - CARDIAC DISORDER [None]
  - OXYGEN SATURATION DECREASED [None]
